FAERS Safety Report 21207817 (Version 1)
Quarter: 2022Q3

REPORT INFORMATION
  Report Type: Spontaneous
  Country: CA (occurrence: CA)
  Receive Date: 20220812
  Receipt Date: 20220812
  Transmission Date: 20221027
  Serious: Yes (Other)
  Sender: FDA-Public Use
  Company Number: None

PATIENT
  Age: 66 Year
  Sex: Female

DRUGS (2)
  1. METHOTREXATE [Suspect]
     Active Substance: METHOTREXATE
     Indication: Product used for unknown indication
  2. DESOXIMETASONE [Concomitant]
     Active Substance: DESOXIMETASONE

REACTIONS (3)
  - Drug intolerance [Unknown]
  - Pancreatitis [Unknown]
  - Synovitis [Unknown]
